FAERS Safety Report 7790360-6 (Version None)
Quarter: 2011Q3

REPORT INFORMATION
  Report Type: 
  Country: None (occurrence: None)
  Receive Date: 20110930
  Receipt Date: 20110922
  Transmission Date: 20111222
  Serious: Yes (Other)
  Sender: FDA-Public Use
  Company Number: FR-ELI_LILLY_AND_COMPANY-FR201109006241

PATIENT
  Sex: Female

DRUGS (9)
  1. GEMZAR [Suspect]
     Indication: PANCREATIC CARCINOMA
     Dosage: 1930 MG, UNK
     Route: 042
     Dates: start: 20110721
  2. NICARDIPINE HCL [Concomitant]
  3. IRBESARTAN [Concomitant]
  4. ZOFRAN [Concomitant]
     Indication: PREMEDICATION
     Dosage: 1 TABLET, QD
     Route: 048
     Dates: start: 20110721, end: 20110721
  5. TENORETIC 100 [Concomitant]
  6. ESOMEPRAZOLE SODIUM [Concomitant]
  7. GLICLAZIDE [Concomitant]
  8. PRIMPERAN TAB [Concomitant]
     Indication: PREMEDICATION
     Dosage: 1 TABLET, QD
     Route: 048
     Dates: start: 20110721, end: 20110721
  9. ROSUVASTATIN [Concomitant]

REACTIONS (2)
  - ANGIOEDEMA [None]
  - ECZEMA [None]
